FAERS Safety Report 10229583 (Version 1)
Quarter: 2014Q2

REPORT INFORMATION
  Report Type: Spontaneous
  Country: US (occurrence: US)
  Receive Date: 20140611
  Receipt Date: 20140611
  Transmission Date: 20141212
  Serious: No
  Sender: FDA-Public Use
  Company Number: US-009507513-1406USA004106

PATIENT
  Sex: 0

DRUGS (1)
  1. ZETIA [Suspect]
     Dosage: 10 MG, QD
     Route: 048

REACTIONS (1)
  - Drug intolerance [Unknown]
